FAERS Safety Report 20940362 (Version 2)
Quarter: 2022Q2

REPORT INFORMATION
  Report Type: Spontaneous
  Country: US (occurrence: US)
  Receive Date: 20220609
  Receipt Date: 20220609
  Transmission Date: 20220721
  Serious: Yes (Other)
  Sender: FDA-Public Use
  Company Number: US-ALXN-A202206863

PATIENT
  Age: 47 Year
  Sex: Female

DRUGS (3)
  1. SOLIRIS [Suspect]
     Active Substance: ECULIZUMAB
     Indication: Paroxysmal nocturnal haemoglobinuria
     Dosage: UNK, Q2W
     Route: 042
  2. SOLIRIS [Suspect]
     Active Substance: ECULIZUMAB
     Dosage: UNK, EVERY 12 DAYS
     Route: 042
     Dates: end: 2019
  3. ULTOMIRIS [Suspect]
     Active Substance: RAVULIZUMAB-CWVZ
     Indication: Paroxysmal nocturnal haemoglobinuria
     Dosage: UNK, EVERY 8 WEEKS
     Route: 042

REACTIONS (11)
  - Haemoglobin decreased [Recovering/Resolving]
  - Dehydration [Unknown]
  - Malaise [Unknown]
  - Rash pruritic [Unknown]
  - Depression [Unknown]
  - Rash [Unknown]
  - Nausea [Recovered/Resolved]
  - Headache [Recovered/Resolved]
  - Vomiting [Recovered/Resolved]
  - Arthralgia [Unknown]
  - Fatigue [Unknown]
